FAERS Safety Report 5308609-8 (Version None)
Quarter: 2007Q2

REPORT INFORMATION
  Report Type: 
  Country: None (occurrence: None)
  Receive Date: 20070426
  Receipt Date: 20070420
  Transmission Date: 20071010
  Serious: No
  Sender: FDA-Public Use
  Company Number: CA-MERCK-0704CAN00056

PATIENT
  Age: 41 Year
  Sex: Male

DRUGS (25)
  1. ZETIA [Suspect]
     Indication: DYSLIPIDAEMIA
     Route: 048
     Dates: start: 20070316
  2. CELLCEPT [Suspect]
     Route: 065
  3. TRAZODONE HYDROCHLORIDE [Suspect]
     Indication: INSOMNIA
     Route: 048
     Dates: start: 20070312
  4. CELEXA [Suspect]
     Indication: DEPRESSION
     Route: 065
     Dates: start: 20070312
  5. THEOPHYLLINE [Suspect]
     Indication: BRADYCARDIA
     Route: 048
     Dates: start: 20070312
  6. THEOPHYLLINE [Suspect]
     Route: 048
  7. THEOPHYLLINE [Suspect]
     Route: 048
  8. THEOPHYLLINE [Suspect]
     Route: 048
  9. THEOPHYLLINE [Suspect]
     Route: 048
     Dates: end: 20070328
  10. MAGNESIUM (UNSPECIFIED) [Suspect]
     Indication: HYPOMAGNESAEMIA
     Route: 048
     Dates: start: 20070312
  11. POTASSIUM CHLORIDE [Suspect]
     Indication: HYPOKALAEMIA
     Route: 048
     Dates: start: 20070312
  12. ACYCLOVIR [Concomitant]
     Indication: HERPES VIRUS INFECTION
     Route: 048
     Dates: start: 20070210
  13. ACYCLOVIR [Concomitant]
     Indication: PROPHYLAXIS
     Route: 048
     Dates: start: 20070210
  14. LASIX [Concomitant]
     Indication: FLUID RETENTION
     Route: 048
     Dates: start: 20070312
  15. PANTOPRAZOLE [Concomitant]
     Indication: PROPHYLAXIS
     Route: 048
     Dates: start: 20070210
  16. PREDNISONE [Concomitant]
     Indication: TRANSPLANT REJECTION
     Route: 048
     Dates: start: 20070210
  17. PREDNISONE [Concomitant]
     Route: 048
  18. TACROLIMUS [Concomitant]
     Indication: TRANSPLANT REJECTION
     Route: 048
     Dates: start: 20070216
  19. NYSTATIN [Concomitant]
     Indication: OROPHARYNGEAL CANDIDIASIS
     Route: 065
     Dates: start: 20070210
  20. NYSTATIN [Concomitant]
     Indication: PROPHYLAXIS
     Route: 065
     Dates: start: 20070210
  21. CLONAZEPAM [Concomitant]
     Indication: ANXIETY
     Route: 048
     Dates: start: 20070215
  22. CLONAZEPAM [Concomitant]
     Indication: INSOMNIA
     Route: 048
     Dates: start: 20070215
  23. HEPARIN [Concomitant]
     Indication: PROPHYLAXIS
     Route: 041
     Dates: start: 20070221
  24. CLOTRIMAZOLE [Concomitant]
     Indication: SKIN CANDIDA
     Route: 065
     Dates: start: 20070216, end: 20070328
  25. COLACE [Concomitant]
     Indication: CONSTIPATION
     Route: 065
     Dates: start: 20070216

REACTIONS (2)
  - DRUG INTERACTION [None]
  - DRUG LEVEL INCREASED [None]
